FAERS Safety Report 8451053-5 (Version None)
Quarter: 2012Q2

REPORT INFORMATION
  Report Type: 
  Country: None (occurrence: None)
  Receive Date: 20120620
  Receipt Date: 20120606
  Transmission Date: 20120825
  Serious: Yes (Death, Other)
  Sender: FDA-Public Use
  Company Number: IE-ROCHE-1076286

PATIENT

DRUGS (11)
  1. TACROLIMUS [Suspect]
  2. PREDNISOLONE [Suspect]
     Dosage: FOR 2 DAYS
     Route: 042
  3. PREDNISOLONE [Suspect]
     Route: 048
  4. PREDNISOLONE [Suspect]
     Indication: PROPHYLAXIS AGAINST TRANSPLANT REJECTION
     Route: 042
  5. AZATHIOPRINE [Suspect]
     Indication: PROPHYLAXIS AGAINST TRANSPLANT REJECTION
  6. AZATHIOPRINE [Suspect]
     Route: 048
  7. VALTREX [Concomitant]
     Indication: ANTIVIRAL PROPHYLAXIS
     Route: 048
  8. PREDNISOLONE [Suspect]
     Route: 048
  9. TACROLIMUS [Suspect]
     Indication: PROPHYLAXIS AGAINST TRANSPLANT REJECTION
  10. PREDNISOLONE [Suspect]
     Dosage: FOR 2 DAYS
     Route: 042
  11. CELLCEPT [Suspect]
     Indication: PROPHYLAXIS AGAINST TRANSPLANT REJECTION

REACTIONS (4)
  - GRAFT LOSS [None]
  - HUMAN POLYOMAVIRUS INFECTION [None]
  - SEPSIS [None]
  - CYTOMEGALOVIRUS INFECTION [None]
